FAERS Safety Report 5738180-8 (Version None)
Quarter: 2008Q2

REPORT INFORMATION
  Report Type: 
  Country: None (occurrence: None)
  Receive Date: 20080514
  Receipt Date: 20051130
  Transmission Date: 20081010
  Serious: Yes (Hospitalization, Disabling)
  Sender: FDA-Public Use
  Company Number: US-BRISTOL-MYERS SQUIBB COMPANY-13386065

PATIENT
  Age: 76 Year
  Sex: Female
  Weight: 46 kg

DRUGS (9)
  1. CETUXIMAB [Suspect]
     Indication: NON-SMALL CELL LUNG CANCER
     Dosage: HELD ON 19-OCT-05.MOST RECENT INFUSION ON 1NOV05(375MG)CYC-3
     Route: 042
     Dates: start: 20051012, end: 20051012
  2. TAXOTERE [Suspect]
     Indication: NON-SMALL CELL LUNG CANCER
     Dosage: HELD ON 19-OCT-05.DOSE REDUCED. MOST RECENT INFUSION ON 1NOV05(83MG)CYC-2
     Route: 042
     Dates: start: 20051012, end: 20051012
  3. LOPRESSOR [Concomitant]
  4. COMBIVENT [Concomitant]
     Route: 055
  5. ATIVAN [Concomitant]
     Route: 048
     Dates: start: 20050222
  6. SPIRIVA [Concomitant]
     Indication: CHRONIC OBSTRUCTIVE PULMONARY DISEASE
     Dosage: 1 DOSAGE FORM = 1 PUFF
     Route: 055
  7. MEGACE [Concomitant]
     Indication: DECREASED APPETITE
     Route: 048
  8. MAGNESIUM [Concomitant]
     Route: 048
  9. SEREVENT [Concomitant]
     Indication: CHRONIC OBSTRUCTIVE PULMONARY DISEASE
     Route: 055

REACTIONS (4)
  - ANAEMIA [None]
  - NAUSEA [None]
  - NEUTROPENIA [None]
  - VOMITING [None]
